FAERS Safety Report 25362212 (Version 1)
Quarter: 2025Q2

REPORT INFORMATION
  Report Type: Spontaneous
  Country: US (occurrence: US)
  Receive Date: 20250527
  Receipt Date: 20250527
  Transmission Date: 20250717
  Serious: No
  Sender: ACCORD
  Company Number: US-Accord-424288

PATIENT
  Age: 69 Year
  Sex: Male

DRUGS (6)
  1. ATORVASTATIN [Suspect]
     Active Substance: ATORVASTATIN
     Indication: Product used for unknown indication
  2. ENZALUTAMIDE [Suspect]
     Active Substance: ENZALUTAMIDE
     Indication: Prostate cancer metastatic
     Dosage: STRENGTH: 40 MG
     Route: 048
     Dates: start: 20201218
  3. ENZALUTAMIDE [Suspect]
     Active Substance: ENZALUTAMIDE
     Indication: Prostate cancer metastatic
     Dosage: STRENGTH: 40 MG; (AT NIGHT DAILY)
     Route: 048
     Dates: end: 20221226
  4. ENZALUTAMIDE [Suspect]
     Active Substance: ENZALUTAMIDE
     Indication: Prostate cancer metastatic
     Dosage: STRENGTH: 40 MG; AFTER DINNER EVERY DAY
     Route: 048
     Dates: start: 20231226, end: 20240126
  5. ENZALUTAMIDE [Suspect]
     Active Substance: ENZALUTAMIDE
     Indication: Prostate cancer metastatic
     Dosage: STRENGTH: 40 MG; AT NIGHT
     Route: 048
     Dates: start: 20240206
  6. ENZALUTAMIDE [Suspect]
     Active Substance: ENZALUTAMIDE
     Indication: Prostate cancer metastatic
     Dosage: STRENGTH: 40 MG; ONCE AFTER DINNER
     Route: 048
     Dates: start: 20240308, end: 20240407

REACTIONS (3)
  - Blood cholesterol increased [Unknown]
  - Nausea [Recovering/Resolving]
  - Hypertension [Unknown]

NARRATIVE: CASE EVENT DATE: 20220124
